FAERS Safety Report 4783389-3 (Version None)
Quarter: 2005Q3

REPORT INFORMATION
  Report Type: 
  Country: None (occurrence: None)
  Receive Date: 20050928
  Receipt Date: 20050916
  Transmission Date: 20060218
  Serious: Yes (Hospitalization)
  Sender: FDA-Public Use
  Company Number: 2005-BP-16460RO

PATIENT
  Age: 83 Year
  Sex: Female

DRUGS (2)
  1. PREDNISONE TAB [Suspect]
     Indication: ARTHRITIS
     Dosage: SEE TEXT, PO
     Route: 048
     Dates: end: 20050301
  2. RITUXAN [Concomitant]

REACTIONS (3)
  - PAIN [None]
  - STEROID WITHDRAWAL SYNDROME [None]
  - WEIGHT DECREASED [None]
